FAERS Safety Report 12098938 (Version 1)
Quarter: 2016Q1

REPORT INFORMATION
  Report Type: Spontaneous
  Country: US (occurrence: US)
  Receive Date: 20160222
  Receipt Date: 20160222
  Transmission Date: 20160526
  Serious: No
  Sender: FDA-Public Use
  Company Number: US-TEVA-578887USA

PATIENT
  Sex: Female
  Weight: 69.01 kg

DRUGS (1)
  1. ALENDRONIC SODIUM [Suspect]
     Active Substance: ALENDRONIC ACID
     Indication: OSTEITIS DEFORMANS
     Route: 065
     Dates: start: 20150115, end: 20150630

REACTIONS (5)
  - Muscle spasms [Unknown]
  - Muscle twitching [Unknown]
  - Somnolence [Unknown]
  - Dizziness [Unknown]
  - Pruritus [Unknown]
